FAERS Safety Report 9832601 (Version 1)
Quarter: 2014Q1

REPORT INFORMATION
  Report Type: Spontaneous
  Country: NO (occurrence: NO)
  Receive Date: 20140121
  Receipt Date: 20140121
  Transmission Date: 20141002
  Serious: Yes (Other)
  Sender: FDA-Public Use
  Company Number: NO-ACORDA-ACO_101378_2014

PATIENT
  Age: 36 Year
  Sex: Female

DRUGS (4)
  1. FAMPYRA [Suspect]
     Indication: PRODUCT USED FOR UNKNOWN INDICATION
     Dosage: 10 MG, BID
     Route: 065
     Dates: start: 201307, end: 20131108
  2. LIORESAL [Concomitant]
     Indication: PRODUCT USED FOR UNKNOWN INDICATION
     Dosage: 10 MG, TID
     Route: 065
     Dates: start: 201307, end: 20131108
  3. GILENYA [Concomitant]
     Indication: PRODUCT USED FOR UNKNOWN INDICATION
     Dosage: 0.5 MG, BID
     Route: 065
     Dates: start: 20130702, end: 20131108
  4. SATIVEX [Concomitant]
     Indication: PRODUCT USED FOR UNKNOWN INDICATION
     Dosage: 5 SPRAYS
     Dates: start: 20130930, end: 20131108

REACTIONS (3)
  - Abortion spontaneous [Recovered/Resolved]
  - Overdose [Unknown]
  - Exposure during pregnancy [Recovered/Resolved]
